FAERS Safety Report 23608065 (Version 1)
Quarter: 2024Q1

REPORT INFORMATION
  Report Type: Spontaneous
  Country: LT (occurrence: None)
  Receive Date: 20240307
  Receipt Date: 20240307
  Transmission Date: 20240409
  Serious: Yes (Life-Threatening)
  Sender: FDA-Public Use
  Company Number: 2024A056133

PATIENT

DRUGS (1)
  1. SEROQUEL [Suspect]
     Active Substance: QUETIAPINE FUMARATE
     Route: 048
     Dates: start: 2001

REACTIONS (5)
  - Suicidal ideation [Unknown]
  - Inability to afford medication [Unknown]
  - Amnesia [Unknown]
  - Dizziness [Unknown]
  - Somnolence [Unknown]
